FAERS Safety Report 4385995-7 (Version None)
Quarter: 2004Q2

REPORT INFORMATION
  Report Type: 
  Country: None (occurrence: None)
  Receive Date: 20040628
  Receipt Date: 20040519
  Transmission Date: 20050107
  Serious: Yes (Life-Threatening, Hospitalization)
  Sender: FDA-Public Use
  Company Number: JP-MERCK-0405USA01623

PATIENT
  Age: 79 Year
  Sex: Male

DRUGS (6)
  1. ALLERGENIC EXTRACT [Suspect]
     Indication: DYSURIA
     Route: 065
     Dates: start: 20030501
  2. INSULIN HUMAN [Concomitant]
     Indication: DIABETES MELLITUS
     Route: 065
     Dates: start: 20020201
  3. NIFEDIPINE [Suspect]
     Indication: HYPERTENSION
     Route: 065
     Dates: start: 20030501
  4. ZOCOR [Suspect]
     Indication: HYPERLIPIDAEMIA
     Route: 048
     Dates: start: 19940101, end: 20040430
  5. ZOCOR [Suspect]
     Route: 048
     Dates: start: 20040519
  6. VOGLIBOSE [Suspect]
     Indication: DIABETES MELLITUS
     Route: 065
     Dates: start: 19940101

REACTIONS (3)
  - FALL [None]
  - RHABDOMYOLYSIS [None]
  - SUBDURAL HAEMORRHAGE [None]
